FAERS Safety Report 16374903 (Version 4)
Quarter: 2019Q3

REPORT INFORMATION
  Report Type: Report from Study
  Country: None (occurrence: AR)
  Receive Date: 20190531
  Receipt Date: 20190731
  Transmission Date: 20191004
  Serious: Yes (Other)
  Sender: FDA-Public Use
  Company Number: AR-ABBVIE-19K-007-2749300-00

PATIENT
  Age: 31 Year
  Sex: Female

DRUGS (1)
  1. HUMIRA [Suspect]
     Active Substance: ADALIMUMAB
     Indication: HIDRADENITIS
     Route: 058
     Dates: start: 20160614, end: 201712

REACTIONS (10)
  - Cholestasis [Unknown]
  - Groin abscess [Unknown]
  - Exposure during pregnancy [Unknown]
  - Abscess limb [Unknown]
  - Nipple pain [Unknown]
  - Furuncle [Unknown]
  - Live birth [Unknown]
  - Hidradenitis [Not Recovered/Not Resolved]
  - Nipple disorder [Not Recovered/Not Resolved]
  - Vaginal abscess [Unknown]

NARRATIVE: CASE EVENT DATE: 201807
